FAERS Safety Report 7427057-8 (Version None)
Quarter: 2011Q2

REPORT INFORMATION
  Report Type: 
  Country: None (occurrence: None)
  Receive Date: 20110420
  Receipt Date: 20110407
  Transmission Date: 20111010
  Serious: Yes (Hospitalization)
  Sender: FDA-Public Use
  Company Number: PHHY2011BR29461

PATIENT
  Sex: Female
  Weight: 50 kg

DRUGS (2)
  1. RASILEZ [Suspect]
     Dosage: 300 MG, QD
     Route: 048
  2. EXELON [Suspect]
     Indication: HEAD DISCOMFORT
     Dosage: 18MG/10CM2. ONE PATCH DAILY
     Route: 062
     Dates: start: 20100101

REACTIONS (3)
  - BLOOD PRESSURE ABNORMAL [None]
  - ANXIETY [None]
  - HEAD DISCOMFORT [None]
